FAERS Safety Report 6770825-6 (Version None)
Quarter: 2010Q2

REPORT INFORMATION
  Report Type: 
  Country: None (occurrence: None)
  Receive Date: 20100614
  Receipt Date: 20100614
  Transmission Date: 20101027
  Serious: Yes (Hospitalization)
  Sender: FDA-Public Use
  Company Number: None

PATIENT
  Age: 58 Year
  Sex: Male

DRUGS (2)
  1. WARFARIN SODIUM [Suspect]
     Indication: VASCULAR GRAFT
     Dosage: 5 MG EVERY DAY PO
     Route: 048
     Dates: start: 20100404, end: 20100504
  2. CLOPIDOGREL [Suspect]
     Indication: CORONARY ARTERIAL STENT INSERTION
     Dosage: 1 TAB EVERY DAY PO
     Route: 048

REACTIONS (4)
  - ANAEMIA [None]
  - DYSPNOEA [None]
  - GASTRIC HAEMORRHAGE [None]
  - MELAENA [None]
